FAERS Safety Report 13388073 (Version 4)
Quarter: 2017Q2

REPORT INFORMATION
  Report Type: Spontaneous
  Country: CN (occurrence: CN)
  Receive Date: 20170330
  Receipt Date: 20170522
  Transmission Date: 20170830
  Serious: Yes (Hospitalization)
  Sender: FDA-Public Use
  Company Number: CN-ALLERGAN-1711899US

PATIENT
  Age: 28 Year
  Sex: Female

DRUGS (2)
  1. BOTOX [Suspect]
     Active Substance: ONABOTULINUMTOXINA
     Dosage: 100 UNITS, SINGLE
     Route: 030
     Dates: start: 20170325, end: 20170325
  2. BOTOX [Suspect]
     Active Substance: ONABOTULINUMTOXINA
     Indication: SKIN COSMETIC PROCEDURE
     Dosage: 100 UNITS, SINGLE
     Route: 030
     Dates: start: 20170325, end: 20170325

REACTIONS (4)
  - Nystagmus [Not Recovered/Not Resolved]
  - Dizziness [Unknown]
  - Off label use [Unknown]
  - Product preparation error [Unknown]

NARRATIVE: CASE EVENT DATE: 20170325
